FAERS Safety Report 8882947 (Version 1)
Quarter: 2012Q4

REPORT INFORMATION
  Report Type: 
  Country: US (occurrence: US)
  Receive Date: 20121102
  Receipt Date: 20121102
  Transmission Date: 20130627
  Serious: No
  Sender: FDA-Public Use
  Company Number: US-ASTRAZENECA-2011SE72341

PATIENT
  Age: 50 Year
  Sex: Female
  Weight: 97.5 kg

DRUGS (2)
  1. CRESTOR [Suspect]
     Indication: HYPERCHOLESTEROLAEMIA
     Route: 048
     Dates: start: 2008, end: 201108
  2. ALBUTIRIN [Concomitant]
     Indication: STRESS

REACTIONS (3)
  - Blood glucose increased [Unknown]
  - Pain in extremity [Unknown]
  - Hepatic enzyme increased [Unknown]
